FAERS Safety Report 18278848 (Version 2)
Quarter: 2021Q3

REPORT INFORMATION
  Report Type: Report from Study
  Country: CA (occurrence: CA)
  Receive Date: 20200917
  Receipt Date: 20210903
  Transmission Date: 20211014
  Serious: Yes (Other)
  Sender: FDA-Public Use
  Company Number: CA-ACCORD-200996

PATIENT
  Age: 43 Year
  Sex: Female

DRUGS (6)
  1. MYCOPHENOLIC ACID. [Suspect]
     Active Substance: MYCOPHENOLIC ACID
     Indication: SJOGREN^S SYNDROME
     Route: 048
  2. RITUXIMAB. [Suspect]
     Active Substance: RITUXIMAB
     Indication: SJOGREN^S SYNDROME
  3. AZATHIOPRINE. [Suspect]
     Active Substance: AZATHIOPRINE
     Indication: SJOGREN^S SYNDROME
  4. ALLOPURINOL. [Concomitant]
     Active Substance: ALLOPURINOL
     Indication: SJOGREN^S SYNDROME
  5. METHYLPREDNISOLONE. [Concomitant]
     Active Substance: METHYLPREDNISOLONE
     Indication: VISUAL IMPAIRMENT
  6. METHOTREXATE. [Suspect]
     Active Substance: METHOTREXATE
     Indication: SJOGREN^S SYNDROME
     Dosage: FREQUENCY: 1 EVERY 1 WEEKS

REACTIONS (7)
  - Magnetic resonance imaging abnormal [Unknown]
  - Visual impairment [Unknown]
  - Coronary artery disease [Unknown]
  - Drug intolerance [Unknown]
  - Lymphadenopathy [Unknown]
  - Rash [Unknown]
  - Cerebrovascular accident [Unknown]
